FAERS Safety Report 5218003-6 (Version None)
Quarter: 2007Q1

REPORT INFORMATION
  Report Type: 
  Country: None (occurrence: None)
  Receive Date: 20061130
  Receipt Date: 20060407
  Transmission Date: 20070707
  Serious: Yes (Hospitalization)
  Sender: FDA-Public Use
  Company Number: US200602005428

PATIENT
  Age: 45 Year
  Sex: Female

DRUGS (7)
  1. ZYPREXA [Suspect]
     Indication: HALLUCINATION
     Dosage: 30 MG, EACH EVENING, ORAL
     Route: 048
     Dates: start: 20050101, end: 20050901
  2. CYMBALTA [Concomitant]
  3. INTERFERON (INTERFERON) [Concomitant]
  4. HALDOL SOLUTAB [Concomitant]
  5. RITALIN [Concomitant]
  6. AMBIEN [Concomitant]
  7. KLONOPIN [Concomitant]

REACTIONS (2)
  - PANCREATITIS ACUTE [None]
  - PRESCRIBED OVERDOSE [None]
